FAERS Safety Report 7009339-7 (Version None)
Quarter: 2010Q3

REPORT INFORMATION
  Report Type: 
  Country: None (occurrence: None)
  Receive Date: 20100923
  Receipt Date: 20100915
  Transmission Date: 20110219
  Serious: Yes (Hospitalization)
  Sender: FDA-Public Use
  Company Number: US-KINGPHARMUSA00001-K200900214

PATIENT
  Age: 78 Year
  Sex: Male

DRUGS (7)
  1. ALTACE [Suspect]
     Dosage: 2.5 MG, QD
     Route: 048
     Dates: start: 20010101, end: 20080402
  2. DULCOLAX [Suspect]
     Indication: CONSTIPATION
     Dosage: 5 MG, QD
     Route: 048
     Dates: start: 20080328, end: 20080402
  3. MEMANTINE HCL [Concomitant]
     Indication: DEMENTIA ALZHEIMER'S TYPE
     Dosage: 10 MG, BID
     Route: 048
     Dates: start: 20050101
  4. ACETYLSALICYLIC ACID [Concomitant]
     Indication: CORONARY ARTERY DISEASE
     Dosage: 100 MG, UNK
     Route: 048
     Dates: start: 20010101
  5. BISOPROLOL FUMARATE [Concomitant]
     Indication: CORONARY ARTERY DISEASE
     Dosage: 2.5 MG, UNK
     Route: 048
     Dates: start: 20010101
  6. ESOMEPRAZOLE MAGNESIUM [Concomitant]
     Indication: GASTRITIS EROSIVE
     Dosage: 20 MG, UNK
     Route: 048
     Dates: start: 20071001
  7. RISPERIDONE [Concomitant]
     Indication: DEMENTIA ALZHEIMER'S TYPE
     Dosage: 2.5 MG, UNK
     Route: 048

REACTIONS (8)
  - COMA [None]
  - DEHYDRATION [None]
  - DIARRHOEA [None]
  - HEART RATE INCREASED [None]
  - HYPERKALAEMIA [None]
  - HYPOTENSION [None]
  - RENAL FAILURE [None]
  - SYNCOPE [None]
